FAERS Safety Report 8302157-9 (Version None)
Quarter: 2012Q2

REPORT INFORMATION
  Report Type: 
  Country: None (occurrence: None)
  Receive Date: 20120402
  Receipt Date: 20120323
  Transmission Date: 20120825
  Serious: Yes (Other)
  Sender: FDA-Public Use
  Company Number: 2011027859

PATIENT
  Age: 61 Year
  Sex: Female
  Weight: 88.4514 kg

DRUGS (27)
  1. HIZENTRA [Suspect]
  2. HIZENTRA [Suspect]
  3. HIZENTRA [Suspect]
  4. ONGLYZA (DRUG USED IN DIABETES) [Concomitant]
  5. SPIRIVA [Concomitant]
  6. TRAMADOL HCL [Concomitant]
  7. ATENOLOL [Concomitant]
  8. SYMBICORT [Concomitant]
  9. NEXIUM [Concomitant]
  10. DUONEB [Concomitant]
  11. LIPITOR [Concomitant]
  12. BUPROPION HCL [Concomitant]
  13. HIZENTRA [Suspect]
  14. PERFOROMIST (FORMOTEROL) [Concomitant]
  15. HIZENTRA [Suspect]
  16. ASPIRIN [Concomitant]
  17. HIZENTRA [Suspect]
     Indication: IMMUNODEFICIENCY COMMON VARIABLE
     Dosage: 13 G 1/WEEK, INFUSED 64 ML VIA 3-5 SITES OVER 2-2.5 HOURS, SUBCUTANEOUS
     Route: 058
     Dates: start: 20110304
  18. HIZENTRA [Suspect]
     Indication: IMMUNODEFICIENCY COMMON VARIABLE
     Dosage: 13 G 1/WEEK, INFUSED 64 ML VIA 3-5 SITES OVER 2-2.5 HOURS, SUBCUTANEOUS
     Route: 058
     Dates: start: 20110411
  19. HIZENTRA [Suspect]
     Indication: IMMUNODEFICIENCY COMMON VARIABLE
     Dosage: 13 G 1/WEEK, INFUSED 64 ML VIA 3-5 SITES OVER 2-2.5 HOURS, SUBCUTANEOUS
     Route: 058
     Dates: start: 20120315
  20. HIZENTRA [Suspect]
     Indication: IMMUNODEFICIENCY COMMON VARIABLE
     Dosage: 13 G 1/WEEK, INFUSED 64 ML VIA 3-5 SITES OVER 2-2.5 HOURS, SUBCUTANEOUS
     Route: 058
     Dates: start: 20110630
  21. HIZENTRA [Suspect]
     Indication: IMMUNODEFICIENCY COMMON VARIABLE
     Dosage: 13 G 1/WEEK, INFUSED 64 ML VIA 3-5 SITES OVER 2-2.5 HOURS, SUBCUTANEOUS
     Route: 058
     Dates: start: 20120315
  22. LASIX [Concomitant]
  23. HIZENTRA [Suspect]
  24. CYMBALTA [Concomitant]
  25. FLUCITASONE (FLUTICASONE) [Concomitant]
  26. ISOSORBIDE (ISOSORBIDE) [Concomitant]
  27. KLOR-CON [Concomitant]

REACTIONS (8)
  - FEELING ABNORMAL [None]
  - PAIN [None]
  - FUNGAL INFECTION [None]
  - FATIGUE [None]
  - INFUSION SITE IRRITATION [None]
  - INFUSION SITE EXTRAVASATION [None]
  - URINARY TRACT INFECTION [None]
  - SINUSITIS [None]
